FAERS Safety Report 5406795-2 (Version None)
Quarter: 2007Q3

REPORT INFORMATION
  Report Type: 
  Country: None (occurrence: None)
  Receive Date: 20070807
  Receipt Date: 20070803
  Transmission Date: 20080115
  Serious: Yes (Death, Life-Threatening)
  Sender: FDA-Public Use
  Company Number: PHNR2007AU01433

PATIENT
  Age: 70 Year
  Sex: Male
  Weight: 60 kg

DRUGS (8)
  1. ACETAMINOPHEN W/ CODEINE [Suspect]
     Dates: start: 19880830, end: 19880911
  2. QUININE BISULPHATE [Suspect]
     Indication: PAIN IN EXTREMITY
     Dosage: 300 MG, PRN
     Dates: start: 19880101, end: 19880911
  3. BRUFEN [Suspect]
     Indication: ARTHRITIS
     Dosage: 800MG DAILY
     Route: 048
     Dates: start: 19880101, end: 19880911
  4. LASIX [Suspect]
     Indication: CARDIAC FAILURE CONGESTIVE
     Dosage: 80MG DAILY
     Dates: start: 19880101, end: 19880911
  5. MIDAMOR [Suspect]
     Indication: CARDIAC FAILURE CONGESTIVE
     Dosage: 10MG DAILY
     Dates: start: 19880101, end: 19880911
  6. TRANSDERM-NITRO [Suspect]
     Indication: ANGINA PECTORIS
     Dosage: 50MG DAILY
     Dates: start: 19880101
  7. ADALAT [Suspect]
     Indication: ANGINA PECTORIS
     Dosage: 30MG DAILY
     Dates: start: 19880101
  8. TEGRETOL [Suspect]
     Indication: PAIN IN EXTREMITY
     Dosage: 400 MG, QD
     Route: 048
     Dates: start: 19880906, end: 19880911

REACTIONS (2)
  - PLATELET TRANSFUSION [None]
  - THROMBOCYTOPENIA [None]
